FAERS Safety Report 12380807 (Version 2)
Quarter: 2016Q4

REPORT INFORMATION
  Report Type: Spontaneous
  Country: IT (occurrence: IT)
  Receive Date: 20160518
  Receipt Date: 20161014
  Transmission Date: 20170207
  Serious: Yes (Other)
  Sender: FDA-Public Use
  Company Number: IT-ACCORD-038353

PATIENT
  Age: 3 Year
  Sex: Male
  Weight: 15 kg

DRUGS (7)
  1. CARBOPLATIN. [Suspect]
     Active Substance: CARBOPLATIN
     Indication: NEPHROBLASTOMA
     Route: 042
     Dates: start: 20151208
  2. ACICLOVIR [Concomitant]
     Active Substance: ACYCLOVIR
  3. ETOPOSIDE. [Suspect]
     Active Substance: ETOPOSIDE
     Indication: NEPHROBLASTOMA
     Route: 042
     Dates: start: 20151208
  4. ALKERAN [Suspect]
     Active Substance: MELPHALAN
     Indication: NEPHROBLASTOMA
     Route: 042
     Dates: start: 20151212
  5. DIFLUCAN [Concomitant]
     Active Substance: FLUCONAZOLE
  6. RANITIDINE. [Concomitant]
     Active Substance: RANITIDINE
  7. BACTRIM [Concomitant]
     Active Substance: SULFAMETHOXAZOLE\TRIMETHOPRIM

REACTIONS (6)
  - Off label use [Unknown]
  - Mucosal inflammation [Recovered/Resolved]
  - Pyrexia [Recovered/Resolved]
  - Hypertransaminasaemia [Recovered/Resolved]
  - Abdominal pain [Recovered/Resolved]
  - Diarrhoea [Recovered/Resolved]

NARRATIVE: CASE EVENT DATE: 20151210
